FAERS Safety Report 10091627 (Version 2)
Quarter: 2014Q4

REPORT INFORMATION
  Report Type: Report from Study
  Country: US (occurrence: US)
  Receive Date: 20140421
  Receipt Date: 20141021
  Transmission Date: 20150528
  Serious: Yes (Death, Other)
  Sender: FDA-Public Use
  Company Number: US-GILEAD-2014-0100050

PATIENT
  Sex: Female

DRUGS (7)
  1. IMITREX                            /01044802/ [Concomitant]
  2. XANAX [Concomitant]
     Active Substance: ALPRAZOLAM
  3. TESSALON [Concomitant]
     Active Substance: BENZONATATE
  4. AZTREONAM LYSINE [Suspect]
     Active Substance: AZTREONAM LYSINE
     Indication: PSEUDOMONAS INFECTION
  5. FOSAMAX [Concomitant]
     Active Substance: ALENDRONATE SODIUM
  6. AZTREONAM LYSINE [Suspect]
     Active Substance: AZTREONAM LYSINE
     Indication: CYSTIC FIBROSIS LUNG
     Dosage: 75 MG, UNK
     Route: 055
  7. AMBIEN [Concomitant]
     Active Substance: ZOLPIDEM TARTRATE

REACTIONS (2)
  - Overdose [Fatal]
  - Toxicity to various agents [Fatal]

NARRATIVE: CASE EVENT DATE: 20120904
